FAERS Safety Report 24540671 (Version 1)
Quarter: 2024Q4

REPORT INFORMATION
  Report Type: Spontaneous
  Country: US (occurrence: None)
  Receive Date: 20241023
  Receipt Date: 20241023
  Transmission Date: 20250114
  Serious: Yes (unspecified)
  Sender: Public
  Company Number: None

PATIENT
  Age: 69 Year
  Sex: Female
  Weight: 67.59 kg

DRUGS (7)
  1. LURASIDONE [Suspect]
     Active Substance: LURASIDONE
     Indication: Bipolar disorder
     Dosage: FREQUENCY : DAILY;?
     Route: 048
     Dates: start: 20241009
  2. FLUOXETINE [Concomitant]
  3. FUROSEMIDE [Concomitant]
  4. POTASSIUM CL ER [Concomitant]
  5. LEVOTHYROXINE [Concomitant]
  6. ALBUTEROL HFA [Concomitant]
  7. TRIAMCINOLONE ACETONIDE [Concomitant]

REACTIONS (12)
  - Skin discolouration [None]
  - Lip swelling [None]
  - Diarrhoea [None]
  - Musculoskeletal stiffness [None]
  - Anxiety [None]
  - Tremor [None]
  - Gait disturbance [None]
  - Gait disturbance [None]
  - Somnolence [None]
  - Muscle twitching [None]
  - Pruritus [None]
  - Hypersensitivity [None]
